FAERS Safety Report 5656322-X (Version None)
Quarter: 2008Q1

REPORT INFORMATION
  Report Type: 
  Country: None (occurrence: None)
  Receive Date: 20080309
  Receipt Date: 20080115
  Transmission Date: 20080703
  Serious: No
  Sender: FDA-Public Use
  Company Number: US-BAYER-200713118BCC

PATIENT
  Age: 69 Year
  Sex: Male
  Weight: 97 kg

DRUGS (1)
  1. ALEVE [Suspect]
     Indication: PAIN
     Dosage: TOTAL DAILY DOSE: 440 MG  UNIT DOSE: 220 MG
     Route: 048
     Dates: start: 20070925, end: 20070925

REACTIONS (3)
  - FLATULENCE [None]
  - PAIN [None]
  - STOMACH DISCOMFORT [None]
